FAERS Safety Report 5930665-4 (Version None)
Quarter: 2008Q4

REPORT INFORMATION
  Report Type: 
  Country: None (occurrence: None)
  Receive Date: 20081027
  Receipt Date: 20081020
  Transmission Date: 20090506
  Serious: Yes (Other)
  Sender: FDA-Public Use
  Company Number: IE-BAYER-200812903BNE

PATIENT
  Sex: Female

DRUGS (1)
  1. NEXAVAR [Suspect]
     Indication: MALIGNANT MELANOMA
     Dates: start: 20081009

REACTIONS (1)
  - RADIATION SKIN INJURY [None]
